FAERS Safety Report 16825469 (Version 1)
Quarter: 2019Q3

REPORT INFORMATION
  Report Type: Spontaneous
  Country: DE (occurrence: DE)
  Receive Date: 20190919
  Receipt Date: 20190919
  Transmission Date: 20191005
  Serious: Yes (Congenital Anomaly, Other)
  Sender: FDA-Public Use
  Company Number: DE-JNJFOC-20190920194

PATIENT
  Sex: Male

DRUGS (4)
  1. CYTOTEC [Concomitant]
     Active Substance: MISOPROSTOL
     Indication: LABOUR INDUCTION
     Dosage: GESTATION PERIOD : 3 (TRIMESTER)?41.3. - 41.3. GESTATIONAL WEEK
     Route: 064
     Dates: start: 20190404, end: 20190404
  2. IBUPROFEN. [Suspect]
     Active Substance: IBUPROFEN
     Indication: PAIN
     Dosage: 2000 (MG/D (BIS 1200) )/ FACIAL PAIN?8.5. - 12.1. GESTATIONAL WEEK (GESTATION PERIOD : 1 TRIMESTER)
     Route: 064
     Dates: start: 20180818, end: 20180911
  3. PARACETAMOL [Concomitant]
     Active Substance: ACETAMINOPHEN
     Indication: PAIN
     Dosage: 3000 (MG/D )/ FACIAL PAIN?7.6. - 8.5. GESTATIONAL WEEK (GESTATION PERIOD : 1 TRIMESTER)
     Route: 064
     Dates: start: 20180812, end: 20180818
  4. INFLUENZA VACCINE [Concomitant]
     Active Substance: INFLUENZA VIRUS VACCINE
     Indication: IMMUNISATION
     Dosage: GESTATION PERIOD : 2 (TRIMESTER)?19. - 19. GESTATIONAL WEEK
     Route: 064
     Dates: start: 20181029, end: 20181029

REACTIONS (2)
  - Foetal exposure during pregnancy [Unknown]
  - Talipes [Not Recovered/Not Resolved]
